FAERS Safety Report 7632675-8 (Version None)
Quarter: 2011Q3

REPORT INFORMATION
  Report Type: 
  Country: None (occurrence: None)
  Receive Date: 20110725
  Receipt Date: 20101123
  Transmission Date: 20111222
  Serious: No
  Sender: FDA-Public Use
  Company Number: US-BRISTOL-MYERS SQUIBB COMPANY-15402464

PATIENT
  Age: 63 Year
  Sex: Female
  Weight: 73 kg

DRUGS (1)
  1. COUMADIN [Suspect]
     Dosage: STARTED 2 TO 3 WEEKS AGO
     Dates: start: 20100101

REACTIONS (1)
  - FEELING ABNORMAL [None]
